FAERS Safety Report 15884003 (Version 1)
Quarter: 2019Q1

REPORT INFORMATION
  Report Type: Report from Study
  Country: US (occurrence: US)
  Receive Date: 20190129
  Receipt Date: 20190129
  Transmission Date: 20190417
  Serious: Yes (Other)
  Sender: FDA-Public Use
  Company Number: US-COVIS PHARMA B.V.-2019COV00045

PATIENT
  Age: 74 Year
  Sex: Female
  Weight: 79.82 kg

DRUGS (5)
  1. CELEBREX [Suspect]
     Active Substance: CELECOXIB
  2. HUMIRA [Suspect]
     Active Substance: ADALIMUMAB
     Indication: RHEUMATOID ARTHRITIS
     Dosage: 40 MG EVERY 2 WEEKS
     Route: 058
     Dates: start: 201702, end: 20171101
  3. PRILOSEC [Suspect]
     Active Substance: OMEPRAZOLE MAGNESIUM
  4. RAMIPRIL. [Suspect]
     Active Substance: RAMIPRIL
  5. HUMIRA [Suspect]
     Active Substance: ADALIMUMAB
     Dosage: 40 MG EVERY 2 WEEKS
     Route: 058
     Dates: start: 20180220

REACTIONS (6)
  - Weight decreased [Not Recovered/Not Resolved]
  - Bone disorder [Recovered/Resolved]
  - Skin exfoliation [Not Recovered/Not Resolved]
  - Renal failure [Recovered/Resolved]
  - Renal disorder [Recovered/Resolved]
  - Musculoskeletal pain [Recovering/Resolving]

NARRATIVE: CASE EVENT DATE: 201711
